FAERS Safety Report 13369030 (Version 1)
Quarter: 2017Q1

REPORT INFORMATION
  Report Type: Spontaneous
  Country: US (occurrence: US)
  Receive Date: 20170323
  Receipt Date: 20170323
  Transmission Date: 20170429
  Serious: Yes (Disabling, Other)
  Sender: FDA-Public Use
  Company Number: None

PATIENT
  Age: 50 Year
  Sex: Male
  Weight: 98.97 kg

DRUGS (3)
  1. METOPROLOL ER [Concomitant]
     Active Substance: METOPROLOL SUCCINATE
  2. NEXIUM [Concomitant]
     Active Substance: ESOMEPRAZOLE MAGNESIUM
  3. AVELOX [Suspect]
     Active Substance: MOXIFLOXACIN HYDROCHLORIDE
     Indication: SINUSITIS
     Route: 048
     Dates: start: 20101209, end: 20101227

REACTIONS (2)
  - Neuropathy peripheral [None]
  - Tremor [None]

NARRATIVE: CASE EVENT DATE: 20101214
